FAERS Safety Report 22086304 (Version 2)
Quarter: 2023Q2

REPORT INFORMATION
  Report Type: Spontaneous
  Country: CZ (occurrence: CZ)
  Receive Date: 20230310
  Receipt Date: 20230516
  Transmission Date: 20230721
  Serious: Yes (Other)
  Sender: FDA-Public Use
  Company Number: CZ-Zentiva-2023-ZT-005413

PATIENT
  Age: 44 Year
  Sex: Female

DRUGS (4)
  1. VENLAFAXINE [Suspect]
     Active Substance: VENLAFAXINE HYDROCHLORIDE
     Indication: Migraine
     Route: 065
  2. SUMATRIPTAN [Concomitant]
     Active Substance: SUMATRIPTAN
     Indication: Migraine
  3. TOPIRAMATE [Concomitant]
     Active Substance: TOPIRAMATE
     Indication: Migraine prophylaxis
  4. TOPIRAMATE [Concomitant]
     Active Substance: TOPIRAMATE
     Dosage: GRADUALLY INCREASED
     Dates: start: 2022

REACTIONS (3)
  - Drug intolerance [Unknown]
  - Syncope [Unknown]
  - Dizziness [Unknown]
